FAERS Safety Report 4806108-0 (Version None)
Quarter: 2005Q4

REPORT INFORMATION
  Report Type: 
  Country: None (occurrence: None)
  Receive Date: 20051021
  Receipt Date: 20051007
  Transmission Date: 20060501
  Serious: Yes (Death)
  Sender: FDA-Public Use
  Company Number: DE-ROCHE-420355

PATIENT
  Age: 54 Year
  Sex: Female

DRUGS (2)
  1. MYCOPHENOLATE MOFETIL [Suspect]
     Route: 048
     Dates: start: 20050805, end: 20050825
  2. TACROLIMUS [Suspect]
     Route: 048
     Dates: start: 20050805, end: 20050827

REACTIONS (1)
  - CENTRAL PONTINE MYELINOLYSIS [None]
